FAERS Safety Report 25656170 (Version 1)
Quarter: 2025Q3

REPORT INFORMATION
  Report Type: Report from Study
  Country: US (occurrence: US)
  Receive Date: 20250807
  Receipt Date: 20250807
  Transmission Date: 20251021
  Serious: Yes (Other)
  Sender: ABBVIE
  Company Number: US-ABBVIE-5814665

PATIENT
  Age: 26 Year
  Sex: Female
  Weight: 63.5 kg

DRUGS (4)
  1. RINVOQ [Suspect]
     Active Substance: UPADACITINIB
     Indication: Crohn^s disease
     Dosage: FORM STRENGTH 45 MG
     Route: 048
     Dates: start: 202411
  2. RINVOQ [Suspect]
     Active Substance: UPADACITINIB
     Indication: Crohn^s disease
     Dosage: FORM STRENGTH 45 MG
     Route: 048
     Dates: start: 202403, end: 202405
  3. RINVOQ [Suspect]
     Active Substance: UPADACITINIB
     Indication: Crohn^s disease
     Dosage: FORM STRENGTH 30 MG
     Route: 048
     Dates: start: 202405, end: 202410
  4. WELLBUTRIN [Concomitant]
     Active Substance: BUPROPION HYDROCHLORIDE
     Indication: Anxiety

REACTIONS (5)
  - Abortion induced [Unknown]
  - Acne [Not Recovered/Not Resolved]
  - Acne [Recovered/Resolved]
  - Overgrowth fungal [Recovering/Resolving]
  - Maternal exposure during pregnancy [Unknown]

NARRATIVE: CASE EVENT DATE: 20240101
